FAERS Safety Report 5454051-9 (Version None)
Quarter: 2007Q3

REPORT INFORMATION
  Report Type: 
  Country: None (occurrence: None)
  Receive Date: 20070917
  Receipt Date: 20070228
  Transmission Date: 20080115
  Serious: Yes (Other)
  Sender: FDA-Public Use
  Company Number: US-ASTRAZENECA-2006UW05664

PATIENT
  Age: 11 Year
  Sex: Female
  Weight: 58.2 kg

DRUGS (4)
  1. SEROQUEL [Suspect]
     Indication: ANXIETY
     Route: 048
     Dates: start: 20021201, end: 20040901
  2. SEROQUEL [Suspect]
     Indication: BIPOLAR DISORDER
     Route: 048
     Dates: start: 20021201, end: 20040901
  3. RISPERDAL [Suspect]
  4. CLOZAPINE [Concomitant]

REACTIONS (2)
  - PANCREATITIS [None]
  - TARDIVE DYSKINESIA [None]
